FAERS Safety Report 11503803 (Version 2)
Quarter: 2020Q2

REPORT INFORMATION
  Report Type: Spontaneous
  Country: US (occurrence: US)
  Receive Date: 20150914
  Receipt Date: 20200525
  Transmission Date: 20200713
  Serious: No
  Sender: FDA-Public Use
  Company Number: US-TEVA-592580USA

PATIENT

DRUGS (2)
  1. MS CONTIN [Concomitant]
     Active Substance: MORPHINE SULFATE
     Indication: MIGRAINE
     Dosage: 30 MILLIGRAM DAILY;
  2. FENTORA [Suspect]
     Active Substance: FENTANYL CITRATE
     Indication: MIGRAINE

REACTIONS (2)
  - Product use in unapproved indication [Unknown]
  - Product prescribing error [Unknown]
